FAERS Safety Report 9352119 (Version 1)
Quarter: 2013Q2

REPORT INFORMATION
  Report Type: Spontaneous
  Country: GB (occurrence: None)
  Receive Date: 20130612
  Receipt Date: 20130612
  Transmission Date: 20140414
  Serious: Yes (Other)
  Sender: FDA-Public Use
  Company Number: AUR-APL-2013-04754

PATIENT
  Age: 65 Year
  Sex: Female
  Weight: 83 kg

DRUGS (9)
  1. NAPROXEN [Suspect]
     Indication: PRODUCT USED FOR UNKNOWN INDICATION
     Dates: start: 20130408
  2. AMLODIPINE (AMLODIPINE) [Concomitant]
  3. BENDROFLUMSTHIAZIDE (BENDROFLUMETHIAZIDE) [Concomitant]
  4. BUDESONIDE (BUDESONIDE) [Concomitant]
  5. FLUTICASONE PROPIONATE (FLUTICASONE PROPIONATE) [Concomitant]
  6. LOSARTAN (LOSARTAN) [Concomitant]
  7. PARACETAMOL (PARACETAMOL) [Concomitant]
  8. PREDNISOLONE (PREDNSOLONE) [Concomitant]
  9. VENTOLIN (SALBUTAMOL) [Concomitant]

REACTIONS (3)
  - Blister [None]
  - Dermatitis allergic [None]
  - Pruritus [None]
